FAERS Safety Report 5638290-X (Version None)
Quarter: 2008Q1

REPORT INFORMATION
  Report Type: 
  Country: None (occurrence: None)
  Receive Date: 20080226
  Receipt Date: 20080220
  Transmission Date: 20080703
  Serious: Yes (Life-Threatening)
  Sender: FDA-Public Use
  Company Number: GB-BRISTOL-MYERS SQUIBB COMPANY-14011845

PATIENT
  Age: 65 Year
  Sex: Female

DRUGS (3)
  1. CETUXIMAB [Suspect]
     Indication: RECTAL CANCER
     Dosage: 400 MG/M2, 1 IN 1 ONCE ON 09 AUG 07 AND 250 MG/M2,1 IN 1 WEEK ON 18-JUN-2007
     Route: 042
     Dates: start: 20070809, end: 20070809
  2. OXALIPLATIN [Suspect]
     Indication: RECTAL CANCER
     Route: 042
     Dates: start: 20070809, end: 20070809
  3. CAPECITABINE [Suspect]
     Indication: RECTAL CANCER
     Dosage: 14 DAYS EVERY 3 WEEKS
     Route: 048
     Dates: start: 20070809, end: 20070809

REACTIONS (6)
  - COLITIS [None]
  - DIARRHOEA [None]
  - GASTROINTESTINAL INFECTION [None]
  - MUCOSAL INFLAMMATION [None]
  - NEUTROPHIL COUNT [None]
  - PLATELET COUNT DECREASED [None]
